FAERS Safety Report 5927239-8 (Version None)
Quarter: 2008Q4

REPORT INFORMATION
  Report Type: 
  Country: None (occurrence: None)
  Receive Date: 20081022
  Receipt Date: 20081006
  Transmission Date: 20090506
  Serious: Yes (Hospitalization)
  Sender: FDA-Public Use
  Company Number: JP-PFIZER INC-2008088238

PATIENT
  Age: 75 Year
  Sex: Female

DRUGS (1)
  1. AMLODIN [Suspect]

REACTIONS (1)
  - OVERDOSE [None]
